FAERS Safety Report 7392953-7 (Version None)
Quarter: 2011Q2

REPORT INFORMATION
  Report Type: 
  Country: None (occurrence: None)
  Receive Date: 20110404
  Receipt Date: 20110331
  Transmission Date: 20111010
  Serious: Yes (Other)
  Sender: FDA-Public Use
  Company Number: US-AMGEN-USASP2011017437

PATIENT
  Age: 59 Year
  Sex: Female
  Weight: 122 kg

DRUGS (1)
  1. NPLATE [Suspect]
     Indication: IDIOPATHIC THROMBOCYTOPENIC PURPURA
     Dosage: 240 A?G, QWK
     Dates: start: 20110128, end: 20110318

REACTIONS (1)
  - THROMBOSIS [None]
